FAERS Safety Report 8961723 (Version 1)
Quarter: 2012Q4

REPORT INFORMATION
  Report Type: 
  Country: FR (occurrence: FR)
  Receive Date: 20121213
  Receipt Date: 20121213
  Transmission Date: 20130627
  Serious: Yes (Other)
  Sender: FDA-Public Use
  Company Number: FR-PFIZER INC-2012308765

PATIENT
  Age: 30 Year
  Sex: Male

DRUGS (5)
  1. LYRICA [Suspect]
     Indication: PAIN NOS
     Dosage: 50 mg (1DF), 2x/day
     Route: 048
     Dates: start: 20121003, end: 20121008
  2. LYRICA [Suspect]
     Indication: NEURALGIA
  3. CODEINE [Concomitant]
     Indication: PAIN
     Dosage: UNK
     Dates: start: 20120925
  4. CODEINE [Concomitant]
     Dosage: posology was increased
     Dates: start: 20121001
  5. OMEPRAZOLE [Concomitant]
     Dosage: UNK
     Route: 048

REACTIONS (2)
  - Muscle rigidity [Not Recovered/Not Resolved]
  - Muscle contracture [Not Recovered/Not Resolved]
